FAERS Safety Report 9940575 (Version 2)
Quarter: 2014Q2

REPORT INFORMATION
  Report Type: Spontaneous
  Country: US (occurrence: US)
  Receive Date: 20140303
  Receipt Date: 20140415
  Transmission Date: 20141212
  Serious: No
  Sender: FDA-Public Use
  Company Number: US-PFIZER INC-2014059878

PATIENT
  Age: 69 Year
  Sex: Male

DRUGS (14)
  1. NEURONTIN [Suspect]
     Dosage: UNK
  2. METRONIDAZOLE [Suspect]
     Dosage: UNK
  3. ALTACE [Suspect]
     Dosage: UNK
  4. SULFASALAZINE [Suspect]
     Dosage: UNK
  5. COUMADIN [Suspect]
     Dosage: UNK
  6. TERAZOSIN [Suspect]
     Dosage: UNK
  7. ASA [Suspect]
     Dosage: UNK
  8. PRILOSEC [Suspect]
     Dosage: UNK
  9. COREG [Suspect]
     Dosage: UNK
  10. ZOCOR [Suspect]
     Dosage: UNK
  11. COLACE [Suspect]
     Dosage: UNK
  12. BUMEX [Suspect]
     Dosage: UNK
  13. CO Q-10 [Suspect]
     Dosage: UNK
  14. K+ [Suspect]
     Dosage: UNK

REACTIONS (1)
  - Drug hypersensitivity [Unknown]
